FAERS Safety Report 7640070-0 (Version None)
Quarter: 2011Q3

REPORT INFORMATION
  Report Type: 
  Country: None (occurrence: None)
  Receive Date: 20110727
  Receipt Date: 20110719
  Transmission Date: 20111222
  Serious: Yes (Other)
  Sender: FDA-Public Use
  Company Number: US-ASTRAZENECA-2011SE24877

PATIENT
  Age: 19506 Day
  Sex: Male

DRUGS (4)
  1. LAMICTAL [Concomitant]
  2. SEROQUEL [Suspect]
     Route: 048
     Dates: start: 20110418
  3. LITHIUM CARBONATE [Concomitant]
     Indication: BIPOLAR DISORDER
  4. PROZAC [Concomitant]

REACTIONS (2)
  - TRANSIENT ISCHAEMIC ATTACK [None]
  - IMPAIRED WORK ABILITY [None]
